FAERS Safety Report 15297749 (Version 2)
Quarter: 2018Q3

REPORT INFORMATION
  Report Type: Spontaneous
  Country: US (occurrence: US)
  Receive Date: 20180820
  Receipt Date: 20180823
  Transmission Date: 20181010
  Serious: Yes (Other)
  Sender: FDA-Public Use
  Company Number: US-PFIZER INC-2018329012

PATIENT
  Age: 66 Year
  Sex: Female
  Weight: 53.52 kg

DRUGS (4)
  1. TIKOSYN [Suspect]
     Active Substance: DOFETILIDE
     Dosage: 500 MG, 2X/DAY
     Route: 048
     Dates: start: 20180719
  2. TIKOSYN [Suspect]
     Active Substance: DOFETILIDE
     Indication: ATRIAL FIBRILLATION
     Dosage: UNK (DOSE OF TIKOSYN WAS CUT IN HALF)
     Dates: start: 2018, end: 20180812
  3. TIKOSYN [Suspect]
     Active Substance: DOFETILIDE
     Dosage: 250 MG, 2X/DAY
     Route: 048
  4. TIKOSYN [Suspect]
     Active Substance: DOFETILIDE
     Dosage: 200 MG, UNK
     Dates: end: 20180812

REACTIONS (6)
  - Condition aggravated [Not Recovered/Not Resolved]
  - Pleurisy [Unknown]
  - Hyperhidrosis [Recovered/Resolved]
  - Supraventricular extrasystoles [Unknown]
  - Dyspnoea [Not Recovered/Not Resolved]
  - Rales [Unknown]

NARRATIVE: CASE EVENT DATE: 2018
